FAERS Safety Report 6504951-3 (Version None)
Quarter: 2009Q4

REPORT INFORMATION
  Report Type: 
  Country: None (occurrence: None)
  Receive Date: 20091216
  Receipt Date: 20091210
  Transmission Date: 20100525
  Serious: Yes (Death, Life-Threatening)
  Sender: FDA-Public Use
  Company Number: 2009JP006681

PATIENT
  Age: 23 Year
  Sex: Male

DRUGS (3)
  1. PROGRAF [Suspect]
     Indication: ALLOGENIC BONE MARROW TRANSPLANTATION THERAPY
     Dosage: 0.2 MG, BID, ORAL
     Route: 048
     Dates: start: 20060501, end: 20080701
  2. METHOTREXATE [Suspect]
     Indication: ALLOGENIC BONE MARROW TRANSPLANTATION THERAPY
     Dosage: 10 MG, WEEKLY, IV NOS
     Route: 042
     Dates: start: 20060601, end: 20070101
  3. PREDNISOLONE [Concomitant]

REACTIONS (5)
  - DIFFUSE LARGE B-CELL LYMPHOMA [None]
  - EPSTEIN-BARR VIRUS ASSOCIATED LYMPHOPROLIFERATIVE DISORDER [None]
  - METASTASES TO CENTRAL NERVOUS SYSTEM [None]
  - MYOSITIS [None]
  - NO THERAPEUTIC RESPONSE [None]
